FAERS Safety Report 17251687 (Version 2)
Quarter: 2020Q1

REPORT INFORMATION
  Report Type: Spontaneous
  Country: US (occurrence: US)
  Receive Date: 20200109
  Receipt Date: 20200127
  Transmission Date: 20200409
  Serious: Yes (Other)
  Sender: FDA-Public Use
  Company Number: US-PFIZER INC-2020008026

PATIENT
  Age: 55 Year
  Sex: Female
  Weight: 79 kg

DRUGS (1)
  1. CELEBREX [Suspect]
     Active Substance: CELECOXIB
     Indication: FRACTURE
     Dosage: 1 DF, UNK

REACTIONS (7)
  - Accident [Unknown]
  - Peripheral swelling [Unknown]
  - Lower limb fracture [Unknown]
  - Foot fracture [Unknown]
  - Movement disorder [Unknown]
  - Upper limb fracture [Unknown]
  - Contusion [Unknown]

NARRATIVE: CASE EVENT DATE: 20190906
